FAERS Safety Report 8367133-9 (Version None)
Quarter: 2012Q1

REPORT INFORMATION
  Report Type: 
  Country: None (occurrence: None)
  Receive Date: 20120323
  Receipt Date: 20110722
  Transmission Date: 20120608
  Serious: Yes (Hospitalization)
  Sender: FDA-Public Use
  Company Number: 163-21880-11072741

PATIENT
  Age: 62 Year
  Sex: Male
  Weight: 92.9874 kg

DRUGS (10)
  1. BACTRIM [Concomitant]
  2. ACYCLOVIR (ACICLOVIR)(UNKNOWN) [Concomitant]
  3. REVLIMID [Suspect]
     Indication: MULTIPLE MYELOMA
     Dosage: 25 MG,  X 21 DAYS , PO
     Route: 048
     Dates: start: 20110526
  4. DECADRON [Concomitant]
  5. SINGULAR (MONTELUKAST SODIUM)(UNKNOWN) [Concomitant]
  6. FOLIC ACID(FOLIC ACID)(UNKNOWN) [Concomitant]
  7. CARFILZOMIB [Suspect]
     Indication: MULTIPLE MYELOMA
     Dosage: 20 MG/M2 ,
  8. FISH OIL (FISH OIL)(UNKNOWN) [Concomitant]
  9. BICITRA (SHOHL'S SOLUTION) (SOLUTION) [Concomitant]
  10. MULTIVITAMINS(MULTIVITAMINS)(UNKNOWN) [Concomitant]

REACTIONS (1)
  - FEBRILE NEUTROPENIA [None]
